FAERS Safety Report 7724168-4 (Version None)
Quarter: 2011Q3

REPORT INFORMATION
  Report Type: 
  Country: None (occurrence: None)
  Receive Date: 20110901
  Receipt Date: 20110823
  Transmission Date: 20111222
  Serious: Yes (Other)
  Sender: FDA-Public Use
  Company Number: JP-ASTRAZENECA-2011SE51058

PATIENT
  Age: 57 Year
  Sex: Male

DRUGS (2)
  1. PROPOFOL [Suspect]
     Route: 042
  2. PROPOFOL [Suspect]
     Indication: OLIGODENDROGLIOMA
     Route: 042

REACTIONS (2)
  - COMA [None]
  - DYSKINESIA [None]
